FAERS Safety Report 5386168-1 (Version None)
Quarter: 2007Q3

REPORT INFORMATION
  Report Type: 
  Country: None (occurrence: None)
  Receive Date: 20070711
  Receipt Date: 20070711
  Transmission Date: 20080115
  Serious: Yes (Other)
  Sender: FDA-Public Use
  Company Number: None

PATIENT
  Age: 53 Year
  Sex: Male
  Weight: 108.4097 kg

DRUGS (5)
  1. BUPROPION HCL [Suspect]
     Indication: DEPRESSION
     Dosage: 100MG TWICE DAILY PO
     Route: 048
     Dates: start: 20060615, end: 20061114
  2. BUPROPION HCL [Suspect]
     Indication: TOURETTE'S DISORDER
     Dosage: 100MG TWICE DAILY PO
     Route: 048
     Dates: start: 20060615, end: 20061114
  3. ACETAMINOPHEN AND HYDROCODONE BITARTRATE [Concomitant]
  4. ZOLMITRIPTAN [Concomitant]
  5. TESTOSTERONE [Concomitant]

REACTIONS (2)
  - BLOOD PRESSURE INCREASED [None]
  - NIGHT SWEATS [None]
